FAERS Safety Report 6042038-7 (Version None)
Quarter: 2009Q1

REPORT INFORMATION
  Report Type: 
  Country: None (occurrence: None)
  Receive Date: 20090116
  Receipt Date: 20090112
  Transmission Date: 20090719
  Serious: Yes (Other)
  Sender: FDA-Public Use
  Company Number: IL-TEVA-182911ISR

PATIENT
  Age: 26 Year
  Sex: Male

DRUGS (3)
  1. BLEOMYCIN SULFATE [Suspect]
  2. CISPLATIN [Suspect]
  3. ETOPOSIDE [Suspect]

REACTIONS (1)
  - FEBRILE NEUTROPENIA [None]
